FAERS Safety Report 26074325 (Version 1)
Quarter: 2025Q4

REPORT INFORMATION
  Report Type: Spontaneous
  Country: IN (occurrence: IN)
  Receive Date: 20251121
  Receipt Date: 20251121
  Transmission Date: 20260118
  Serious: Yes (Other)
  Sender: RANBAXY
  Company Number: IN-SUN PHARMACEUTICAL INDUSTRIES LTD-2025R1-537338

PATIENT
  Age: 35 Year
  Sex: Female

DRUGS (4)
  1. HYDROCORTISONE [Suspect]
     Active Substance: HYDROCORTISONE
     Indication: Hormone replacement therapy
     Dosage: 30 MILLIGRAM, QD
     Route: 065
  2. THYROXINE [Suspect]
     Active Substance: LEVOTHYROXINE
     Indication: Hypothyroidism
     Dosage: 100 MICROGRAM, QD
     Route: 065
  3. ESTRADIOL VALERATE [Suspect]
     Active Substance: ESTRADIOL VALERATE
     Indication: Hypogonadism
     Dosage: 10 MILLIGRAM, QD
     Route: 065
  4. PROGESTERONE [Suspect]
     Active Substance: PROGESTERONE
     Indication: Hypogonadism
     Dosage: 200 MILLIGRAM, QD
     Route: 065

REACTIONS (6)
  - Adrenocortical insufficiency acute [Unknown]
  - Exposure during pregnancy [Unknown]
  - Live birth [Unknown]
  - Chronic gastritis [Unknown]
  - Bone pain [Unknown]
  - Osteoporosis [Unknown]
